FAERS Safety Report 23916336 (Version 2)
Quarter: 2024Q3

REPORT INFORMATION
  Report Type: Spontaneous
  Country: AR (occurrence: AR)
  Receive Date: 20240529
  Receipt Date: 20240819
  Transmission Date: 20241016
  Serious: No
  Sender: PFIZER
  Company Number: AR-PFIZER INC-202400175761

PATIENT
  Age: 10 Year
  Sex: Female

DRUGS (2)
  1. GENOTROPIN [Suspect]
     Active Substance: SOMATROPIN
     Indication: Turner^s syndrome
     Dosage: 0.9 MG FOR 5 DAYS
     Dates: start: 20171123
  2. GENOTROPIN [Suspect]
     Active Substance: SOMATROPIN
     Dosage: 0.8 MG FOR 1 DAY

REACTIONS (3)
  - Injection site pain [Not Recovered/Not Resolved]
  - Device difficult to use [Unknown]
  - Device mechanical issue [Unknown]
